FAERS Safety Report 5191685-3 (Version None)
Quarter: 2006Q4

REPORT INFORMATION
  Report Type: 
  Country: None (occurrence: None)
  Receive Date: 20061219
  Receipt Date: 20061129
  Transmission Date: 20070319
  Serious: Yes (Other)
  Sender: FDA-Public Use
  Company Number: 2006147313

PATIENT
  Sex: Female

DRUGS (2)
  1. CELEBREX [Suspect]
     Indication: PAIN
     Dosage: (1 D)
     Dates: start: 20000401
  2. BEXTRA [Suspect]
     Indication: PAIN
     Dosage: (1 D)
     Dates: start: 20000401

REACTIONS (1)
  - CARDIOVASCULAR DISORDER [None]
